FAERS Safety Report 25302305 (Version 1)
Quarter: 2025Q2

REPORT INFORMATION
  Report Type: Spontaneous
  Country: US (occurrence: None)
  Receive Date: 20250512
  Receipt Date: 20250512
  Transmission Date: 20250716
  Serious: Yes (Hospitalization, Other)
  Sender: FDA-CTU
  Company Number: None

PATIENT
  Age: 75 Year
  Sex: Male
  Weight: 103.7 kg

DRUGS (1)
  1. VANCOMYCIN [Suspect]
     Active Substance: VANCOMYCIN
     Indication: Pain in extremity
     Route: 041
     Dates: start: 20250429, end: 20250429

REACTIONS (5)
  - Blood pressure decreased [None]
  - Unresponsive to stimuli [None]
  - Pruritus [None]
  - Seizure [None]
  - Drug hypersensitivity [None]

NARRATIVE: CASE EVENT DATE: 20250429
